FAERS Safety Report 6620405-8 (Version None)
Quarter: 2010Q1

REPORT INFORMATION
  Report Type: 
  Country: None (occurrence: None)
  Receive Date: 20100308
  Receipt Date: 20100308
  Transmission Date: 20100710
  Serious: Yes (Hospitalization)
  Sender: FDA-Public Use
  Company Number: None

PATIENT
  Sex: Male
  Weight: 16 kg

DRUGS (8)
  1. NIFURTIMOX 120MG TABS BAYER [Suspect]
     Indication: NEUROBLASTOMA
     Dosage: 30MG/KG/DAY PO DIV TID
     Route: 048
     Dates: start: 20100108, end: 20100301
  2. CYCLOPHOSPHAMIDE/TOPOTECAN [Suspect]
     Indication: NEUROBLASTOMA
     Dosage: 165MG/0.5MG IV X 5 DAYS
     Route: 042
     Dates: start: 20100108, end: 20100219
  3. ZOFRAN [Concomitant]
  4. PENTAMIDINE ISETHIONATE [Concomitant]
  5. TYLENOL-500 [Concomitant]
  6. NEUPOGEN [Concomitant]
  7. FREQUENT PLATELET AND BLOOD PRODUCT TRANSFUSIONS [Concomitant]
  8. MORPHINE [Concomitant]

REACTIONS (3)
  - DEHYDRATION [None]
  - NEUTROPENIA [None]
  - THROMBOCYTOPENIA [None]
